FAERS Safety Report 21909503 (Version 4)
Quarter: 2023Q4

REPORT INFORMATION
  Report Type: Report from Study
  Country: SE (occurrence: SE)
  Receive Date: 20230125
  Receipt Date: 20231218
  Transmission Date: 20240109
  Serious: Yes (Hospitalization, Other)
  Sender: FDA-Public Use
  Company Number: SE-ABBVIE-4282289

PATIENT
  Sex: Female

DRUGS (4)
  1. CARBIDOPA\LEVODOPA [Suspect]
     Active Substance: CARBIDOPA\LEVODOPA
     Indication: Parkinson^s disease
     Dosage: THERAPY DURATION: REMAINS AT 24H
     Route: 050
     Dates: start: 20171127
  2. CARBIDOPA\LEVODOPA [Suspect]
     Active Substance: CARBIDOPA\LEVODOPA
     Dosage: CURRENT DOSAGE CONTINUOUS DOSE NIGHT 1.4ML/H, EXTRA DOSE NIGHT 0.7ML
     Route: 050
     Dates: start: 20230126, end: 20230126
  3. CARBIDOPA\LEVODOPA [Suspect]
     Active Substance: CARBIDOPA\LEVODOPA
     Dosage: CURRENT DOSAGE: MORNING DOSE 4.0ML, CONTINUOUS DOSE DAY: 2.5ML/H, EXTRA DOSE DAY: 1.0ML
     Route: 050
     Dates: start: 20230126
  4. QUETIAPINE [Concomitant]
     Active Substance: QUETIAPINE
     Indication: Product used for unknown indication

REACTIONS (12)
  - Fluid imbalance [Recovered/Resolved]
  - Renal failure [Recovered/Resolved]
  - Urine sodium abnormal [Recovered/Resolved]
  - Speech disorder [Not Recovered/Not Resolved]
  - Dehydration [Unknown]
  - COVID-19 [Unknown]
  - Feeding disorder [Recovering/Resolving]
  - Urine potassium abnormal [Recovered/Resolved]
  - Gait disturbance [Not Recovered/Not Resolved]
  - Limb injury [Unknown]
  - Asthenia [Unknown]
  - Hypophagia [Unknown]

NARRATIVE: CASE EVENT DATE: 20220101
